FAERS Safety Report 9268243 (Version 1)
Quarter: 2013Q2

REPORT INFORMATION
  Report Type: Spontaneous
  Country: US (occurrence: US)
  Receive Date: 20130502
  Receipt Date: 20130502
  Transmission Date: 20140414
  Serious: No
  Sender: FDA-Public Use
  Company Number: US-ALEXION-A201201937

PATIENT
  Sex: Female
  Weight: 76.64 kg

DRUGS (1)
  1. SOLIRIS 300MG [Suspect]
     Indication: PAROXYSMAL NOCTURNAL HAEMOGLOBINURIA
     Dosage: UNK
     Route: 042
     Dates: start: 2007

REACTIONS (12)
  - Contusion [Unknown]
  - Stomatitis [Unknown]
  - Hepatic enzyme increased [Unknown]
  - Dyspnoea exertional [Unknown]
  - Epistaxis [Unknown]
  - Thrombocytopenia [Unknown]
  - Haemoglobin decreased [Unknown]
  - Asthenia [Unknown]
  - Fatigue [Unknown]
  - Constipation [Unknown]
  - Oropharyngeal pain [Unknown]
  - Nausea [Unknown]
